FAERS Safety Report 22205982 (Version 1)
Quarter: 2023Q2

REPORT INFORMATION
  Report Type: Spontaneous
  Country: CO (occurrence: None)
  Receive Date: 20230413
  Receipt Date: 20230413
  Transmission Date: 20230722
  Serious: Yes (Other)
  Sender: FDA-Public Use
  Company Number: CO-ROCHE-3330151

PATIENT
  Sex: Male

DRUGS (1)
  1. HEMLIBRA [Suspect]
     Active Substance: EMICIZUMAB-KXWH
     Indication: Haemophilia
     Route: 065

REACTIONS (1)
  - Haemarthrosis [Unknown]
